FAERS Safety Report 12384386 (Version 2)
Quarter: 2016Q2

REPORT INFORMATION
  Report Type: Spontaneous
  Country: US (occurrence: US)
  Receive Date: 20160519
  Receipt Date: 20160620
  Transmission Date: 20160815
  Serious: Yes (Hospitalization)
  Sender: FDA-Public Use
  Company Number: US-009507513-1605USA006184

PATIENT
  Age: 59 Year
  Sex: Male
  Weight: 95.24 kg

DRUGS (17)
  1. SINGULAIR [Concomitant]
     Active Substance: MONTELUKAST SODIUM
     Dosage: UNK
  2. METAMUCIL [Concomitant]
     Active Substance: PLANTAGO SEED
     Dosage: UNK
  3. FLUTICASONE PROPIONATE. [Concomitant]
     Active Substance: FLUTICASONE PROPIONATE
     Dosage: UNK
  4. OMEGA-3 MARINE TRIGLYCERIDES [Concomitant]
     Active Substance: FISH OIL
     Dosage: UNK
  5. ACETAMINOPHEN (+) ASPIRIN (+) CAFFEINE [Concomitant]
     Dosage: UNK
  6. ALLOPURINOL. [Concomitant]
     Active Substance: ALLOPURINOL
     Dosage: UNK
  7. COLCRYS [Concomitant]
     Active Substance: COLCHICINE
     Dosage: UNK
  8. ZOLPIDEM [Concomitant]
     Active Substance: ZOLPIDEM\ZOLPIDEM TARTRATE
     Dosage: ONLY USED WHEN TEMPAZEPAM NOT GIVEN A GOOD NIGHT REST FOR A FEW NIGHTS
  9. EQUATE ALLERGY AND SINUS HEADACHE (NEW FORMULA) [Concomitant]
     Dosage: UNK
  10. MELATONIN [Concomitant]
     Active Substance: MELATONIN
     Dosage: UNK
  11. AIRBORNE CHEWABLE TABLETS [Concomitant]
     Dosage: UNK
  12. ZYRTEC [Concomitant]
     Active Substance: CETIRIZINE HYDROCHLORIDE
     Dosage: UNK
  13. BELSOMRA [Suspect]
     Active Substance: SUVOREXANT
     Indication: INSOMNIA
     Dosage: TAKE ONE TABLET, AT BEDTIME, TAKEN BY MOUTH
     Route: 048
     Dates: start: 20150905, end: 20150905
  14. NAPROXEN. [Concomitant]
     Active Substance: NAPROXEN
     Dosage: RECENTLY STOPPED
  15. TEMAZEPAM. [Concomitant]
     Active Substance: TEMAZEPAM
     Indication: INSOMNIA
     Dosage: UNK
  16. BELSOMRA [Suspect]
     Active Substance: SUVOREXANT
     Dosage: TAKE ONE TABLET, AT BEDTIME, TAKEN BY MOUTH
     Route: 048
     Dates: start: 20150906, end: 20150906
  17. METFORMIN [Concomitant]
     Active Substance: METFORMIN HYDROCHLORIDE
     Dosage: UNK

REACTIONS (6)
  - Headache [Not Recovered/Not Resolved]
  - Malaise [Not Recovered/Not Resolved]
  - Drug ineffective [Not Recovered/Not Resolved]
  - Dysarthria [Not Recovered/Not Resolved]
  - Sleep disorder [Not Recovered/Not Resolved]
  - Facial paralysis [Not Recovered/Not Resolved]

NARRATIVE: CASE EVENT DATE: 20150907
